FAERS Safety Report 4396435-6 (Version None)
Quarter: 2004Q3

REPORT INFORMATION
  Report Type: 
  Country: None (occurrence: None)
  Receive Date: 20040709
  Receipt Date: 20040624
  Transmission Date: 20050211
  Serious: Yes (Hospitalization)
  Sender: FDA-Public Use
  Company Number: GB-JNJFOC-20040606345

PATIENT
  Age: 31 Year
  Sex: Female

DRUGS (9)
  1. REMICADE [Suspect]
     Dosage: SEE IMAGE
     Route: 042
     Dates: start: 20020403, end: 20021101
  2. REMICADE [Suspect]
     Dosage: SEE IMAGE
     Route: 042
     Dates: start: 20030901, end: 20040517
  3. PROVERA [Concomitant]
  4. PREDNISOLONE [Concomitant]
  5. METHOTREXATE [Concomitant]
  6. FOLIC ACID [Concomitant]
  7. OMEPRAZOLE [Concomitant]
  8. CALCITRIOL [Concomitant]
  9. DICLOFENAC SODIUM [Concomitant]

REACTIONS (1)
  - HAEMATOTOXICITY [None]
